FAERS Safety Report 23078975 (Version 1)
Quarter: 2023Q4

REPORT INFORMATION
  Report Type: Spontaneous
  Country: US (occurrence: None)
  Receive Date: 20231017
  Receipt Date: 20231017
  Transmission Date: 20240109
  Serious: Yes (unspecified)
  Sender: FDA-Public Use
  Company Number: None

PATIENT
  Age: 49 Year
  Sex: Male
  Weight: 119.25 kg

DRUGS (1)
  1. TRULICITY [Suspect]
     Active Substance: DULAGLUTIDE
     Indication: Diabetes mellitus
     Dates: start: 20230604

REACTIONS (5)
  - Abdominal pain upper [None]
  - Nausea [None]
  - Diarrhoea [None]
  - Vomiting [None]
  - Gastroenteritis viral [None]

NARRATIVE: CASE EVENT DATE: 20231008
